APPROVED DRUG PRODUCT: KYTRIL
Active Ingredient: GRANISETRON HYDROCHLORIDE
Strength: EQ 3MG BASE/ML **Federal Register determination that product was not discontinued or withdrawn for safety or effectiveness reasons**
Dosage Form/Route: INJECTABLE;INJECTION
Application: N020239 | Product #001
Applicant: HOFFMANN LA ROCHE INC
Approved: Dec 29, 1993 | RLD: Yes | RS: No | Type: DISCN